FAERS Safety Report 8408057-8 (Version None)
Quarter: 2012Q2

REPORT INFORMATION
  Report Type: 
  Country: None (occurrence: None)
  Receive Date: 20120604
  Receipt Date: 20120530
  Transmission Date: 20120825
  Serious: Yes (Other)
  Sender: FDA-Public Use
  Company Number: US-MERCK-1204USA01199

PATIENT
  Age: 71 Year
  Sex: Female
  Weight: 79 kg

DRUGS (16)
  1. HYDROCHLOROTHIAZIDE [Concomitant]
     Route: 048
  2. SENOKOT [Concomitant]
     Indication: CONSTIPATION
     Route: 048
  3. CITRACAL + D [Concomitant]
     Route: 048
     Dates: end: 20120207
  4. ANTINEOPLASTIC (UNSPECIFIED) [Concomitant]
     Route: 065
  5. MULTI-VITAMINS [Concomitant]
     Route: 065
  6. LEVOTHYROXINE SODIUM [Concomitant]
     Route: 048
  7. SIMVASTATIN [Concomitant]
     Route: 048
  8. ATENOLOL [Concomitant]
     Route: 048
  9. ENOXAPARIN SODIUM [Concomitant]
     Route: 051
  10. FOSAPREPITANT DIMEGLUMINE [Suspect]
     Indication: PROPHYLAXIS OF NAUSEA AND VOMITING
     Route: 041
     Dates: start: 20120404, end: 20120405
  11. LORAZEPAM [Concomitant]
     Indication: ANXIETY
     Route: 048
  12. MESNA [Concomitant]
     Route: 041
     Dates: start: 20120305, end: 20120404
  13. IFOSFAMIDE [Concomitant]
     Route: 041
     Dates: start: 20120305, end: 20120404
  14. ALOXI [Concomitant]
     Route: 041
     Dates: start: 20120404, end: 20120404
  15. DEXAMETHASONE [Concomitant]
     Route: 048
     Dates: start: 20120404, end: 20120404
  16. LOSARTAN POTASSIUM [Concomitant]
     Route: 048

REACTIONS (17)
  - INFUSION SITE HAEMATOMA [None]
  - METASTASES TO ADRENALS [None]
  - PRURITUS [None]
  - TERMINAL INSOMNIA [None]
  - UNDERDOSE [None]
  - INFLAMMATION [None]
  - NEUROPATHY PERIPHERAL [None]
  - INFUSION SITE DISCOMFORT [None]
  - PAIN [None]
  - INFUSION SITE DISCOLOURATION [None]
  - HYPOAESTHESIA [None]
  - INFUSION SITE ERYTHEMA [None]
  - OVERDOSE [None]
  - PARAESTHESIA [None]
  - INJECTION SITE EXTRAVASATION [None]
  - SKIN BURNING SENSATION [None]
  - INFUSION SITE INDURATION [None]
